FAERS Safety Report 14074982 (Version 1)
Quarter: 2017Q4

REPORT INFORMATION
  Report Type: Spontaneous
  Country: US (occurrence: US)
  Receive Date: 20171011
  Receipt Date: 20171011
  Transmission Date: 20180321
  Serious: Yes (Other)
  Sender: FDA-Public Use
  Company Number: US-BEH-2017084151

PATIENT
  Age: 72 Year
  Sex: Male
  Weight: 108.84 kg

DRUGS (41)
  1. HIZENTRA [Suspect]
     Active Substance: HUMAN IMMUNOGLOBULIN G
     Indication: IMMUNODEFICIENCY COMMON VARIABLE
     Dosage: 8 G, UNK
     Route: 058
     Dates: start: 20110310
  2. HIZENTRA [Suspect]
     Active Substance: HUMAN IMMUNOGLOBULIN G
     Dosage: UNK
     Route: 058
  3. DIPHENHYDRAMINE. [Concomitant]
     Active Substance: DIPHENHYDRAMINE
  4. REQUIP [Concomitant]
     Active Substance: ROPINIROLE HYDROCHLORIDE
  5. ALLOPURINOL. [Concomitant]
     Active Substance: ALLOPURINOL
  6. ASPIRIN. [Concomitant]
     Active Substance: ASPIRIN
  7. PRAVACHOL [Concomitant]
     Active Substance: PRAVASTATIN SODIUM
  8. ZOLOFT [Concomitant]
     Active Substance: SERTRALINE HYDROCHLORIDE
  9. RANITIDINE. [Concomitant]
     Active Substance: RANITIDINE
  10. LANTUS [Concomitant]
     Active Substance: INSULIN GLARGINE
  11. BUSPIRONE [Concomitant]
     Active Substance: BUSPIRONE HYDROCHLORIDE
  12. EPINEPHRINE. [Concomitant]
     Active Substance: EPINEPHRINE
  13. METAMUCIL [Concomitant]
     Active Substance: PLANTAGO SEED
  14. SYNTHROID [Concomitant]
     Active Substance: LEVOTHYROXINE SODIUM
  15. WARFARIN [Concomitant]
     Active Substance: WARFARIN
  16. ONE-A-DAY MEN^S [Concomitant]
  17. METFORMIN [Concomitant]
     Active Substance: METFORMIN HYDROCHLORIDE
  18. CLONIDINE. [Concomitant]
     Active Substance: CLONIDINE
  19. FLAGYL [Concomitant]
     Active Substance: METRONIDAZOLE\METRONIDAZOLE HYDROCHLORIDE
  20. GLIPIZIDE. [Concomitant]
     Active Substance: GLIPIZIDE
  21. FERROUS SULFATE. [Concomitant]
     Active Substance: FERROUS SULFATE
  22. ADVAIR HFA [Concomitant]
     Active Substance: FLUTICASONE PROPIONATE\SALMETEROL XINAFOATE
  23. ALBUTEROL                          /00139501/ [Concomitant]
     Active Substance: ALBUTEROL
  24. MORPHINE [Concomitant]
     Active Substance: MORPHINE
  25. DOXYCYCLINE. [Concomitant]
     Active Substance: DOXYCYCLINE
  26. LIDOCAINE/PRILOCAINE [Concomitant]
     Active Substance: LIDOCAINE\PRILOCAINE
  27. CEFDINIR. [Concomitant]
     Active Substance: CEFDINIR
  28. MUCINEX [Concomitant]
     Active Substance: GUAIFENESIN
  29. MOBIC [Concomitant]
     Active Substance: MELOXICAM
  30. PARACETAMOL CODEINE [Concomitant]
     Active Substance: ACETAMINOPHEN\CODEINE PHOSPHATE
  31. FENTANYL. [Concomitant]
     Active Substance: FENTANYL
  32. ZOFRAN [Concomitant]
     Active Substance: ONDANSETRON HYDROCHLORIDE
  33. VITAMIN B12 [Concomitant]
     Active Substance: CYANOCOBALAMIN
  34. LASIX [Concomitant]
     Active Substance: FUROSEMIDE
  35. ACETAMINOPHEN. [Concomitant]
     Active Substance: ACETAMINOPHEN
  36. IBUPROFEN. [Concomitant]
     Active Substance: IBUPROFEN
  37. LOSARTAN. [Concomitant]
     Active Substance: LOSARTAN
  38. OXYGEN. [Concomitant]
     Active Substance: OXYGEN
  39. XANAX [Concomitant]
     Active Substance: ALPRAZOLAM
  40. AMBIEN [Concomitant]
     Active Substance: ZOLPIDEM TARTRATE
  41. ALDACTONE [Concomitant]
     Active Substance: SPIRONOLACTONE

REACTIONS (6)
  - Abdominal pain lower [Unknown]
  - Hypotension [Unknown]
  - Aortic occlusion [Unknown]
  - Atrial fibrillation [Unknown]
  - Aortic valve incompetence [Unknown]
  - Aortic aneurysm [Unknown]

NARRATIVE: CASE EVENT DATE: 20170820
